FAERS Safety Report 6701671-7 (Version None)
Quarter: 2010Q2

REPORT INFORMATION
  Report Type: 
  Country: None (occurrence: None)
  Receive Date: 20100427
  Receipt Date: 20100412
  Transmission Date: 20101027
  Serious: Yes (Hospitalization, Disabling, Other)
  Sender: FDA-Public Use
  Company Number: JPI-P-010328

PATIENT
  Age: 57 Year
  Sex: Male

DRUGS (3)
  1. XYREM [Suspect]
     Indication: CATAPLEXY
     Dosage: 6 GM (3 GM, 2 IN 1 D),ORAL;  9 GM (4.5 GM,2 IN 1 D),ORAL
     Route: 048
     Dates: start: 20090805, end: 20090920
  2. XYREM [Suspect]
     Indication: CATAPLEXY
     Dosage: 6 GM (3 GM, 2 IN 1 D),ORAL;  9 GM (4.5 GM,2 IN 1 D),ORAL
     Route: 048
     Dates: start: 20090921, end: 20100401
  3. MODAFINIL [Concomitant]

REACTIONS (7)
  - BRAIN INJURY [None]
  - BRAIN OEDEMA [None]
  - CATAPLEXY [None]
  - FALL [None]
  - HEMIPLEGIA [None]
  - LOSS OF CONSCIOUSNESS [None]
  - PNEUMONIA [None]
